FAERS Safety Report 20867041 (Version 1)
Quarter: 2022Q2

REPORT INFORMATION
  Report Type: Spontaneous
  Country: US (occurrence: None)
  Receive Date: 20220523
  Receipt Date: 20220523
  Transmission Date: 20220720
  Serious: Yes (Hospitalization)
  Sender: FDA-Public Use
  Company Number: None

PATIENT
  Age: 55 Year
  Sex: Female

DRUGS (4)
  1. VERZENIO [Suspect]
     Active Substance: ABEMACICLIB
     Indication: Breast cancer metastatic
     Dosage: FREQUENCY : TWICE A DAY;?
     Route: 002
     Dates: start: 20220330, end: 20220418
  2. FULVESTRANT [Concomitant]
     Active Substance: FULVESTRANT
  3. LEVOTHYROXINE [Concomitant]
     Active Substance: LEVOTHYROXINE
  4. zalodex [Concomitant]

REACTIONS (4)
  - Muscle spasms [None]
  - Diarrhoea [None]
  - Myalgia [None]
  - Anaemia [None]

NARRATIVE: CASE EVENT DATE: 20220419
